FAERS Safety Report 6849543-1 (Version None)
Quarter: 2010Q3

REPORT INFORMATION
  Report Type: 
  Country: None (occurrence: None)
  Receive Date: 20100716
  Receipt Date: 20071207
  Transmission Date: 20110219
  Serious: Yes (Hospitalization, Other)
  Sender: FDA-Public Use
  Company Number: US-PFIZER INC-2007082470

PATIENT
  Sex: Male
  Weight: 84.09 kg

DRUGS (8)
  1. CHANTIX [Suspect]
     Indication: SMOKING CESSATION THERAPY
     Route: 048
     Dates: start: 20070601
  2. ALLEGRA D 24 HOUR [Concomitant]
     Indication: SINUS DISORDER
  3. NASONEX [Concomitant]
     Indication: SINUS DISORDER
  4. SERZONE [Concomitant]
  5. PLAVIX [Concomitant]
  6. NORVASC [Concomitant]
  7. ACETYLSALICYLIC ACID [Concomitant]
  8. TRICOR [Concomitant]

REACTIONS (4)
  - AGITATION [None]
  - CHEST DISCOMFORT [None]
  - DRUG DOSE OMISSION [None]
  - IRRITABILITY [None]
